FAERS Safety Report 10182562 (Version 1)
Quarter: 2014Q2

REPORT INFORMATION
  Report Type: Spontaneous
  Country: US (occurrence: None)
  Receive Date: 20140519
  Receipt Date: 20140519
  Transmission Date: 20141212
  Serious: Yes (Disabling)
  Sender: FDA-Public Use
  Company Number: None

PATIENT
  Age: 38 Year
  Sex: Female
  Weight: 77.57 kg

DRUGS (2)
  1. CELEXA [Suspect]
     Indication: MAJOR DEPRESSION
     Dosage: 1 PER DAY
     Dates: start: 20140206, end: 20140508
  2. LEXAPRO [Suspect]
     Indication: MAJOR DEPRESSION
     Dates: start: 20050801, end: 20130930

REACTIONS (1)
  - Arthralgia [None]
